FAERS Safety Report 8849633 (Version 4)
Quarter: 2013Q1

REPORT INFORMATION
  Report Type: Report from Study
  Country: DE (occurrence: DE)
  Receive Date: 20121019
  Receipt Date: 20130110
  Transmission Date: 20140127
  Serious: Yes (Hospitalization)
  Sender: FDA-Public Use
  Company Number: DE-AMGEN-DEUCT2012065573

PATIENT
  Age: 57 Year
  Sex: Female
  Weight: 74 kg

DRUGS (9)
  1. PEGFILGRASTIM [Suspect]
     Indication: ACUTE MYELOID LEUKAEMIA
     Dosage: 6 MG, UNK
     Dates: start: 20120122
  2. CYTARABINE [Concomitant]
     Indication: ACUTE MYELOID LEUKAEMIA
     Dosage: 5220 MG, UNK
     Dates: start: 20120113
  3. RETINOIC ACID [Concomitant]
     Indication: ACUTE MYELOID LEUKAEMIA
     Dosage: 30 MG, UNK
     Dates: start: 20120116
  4. PANTOPRAZOLE [Concomitant]
     Dosage: 40 MG, QD
     Route: 048
     Dates: start: 20111002, end: 20120216
  5. ACICLOVIR [Concomitant]
     Dosage: 400 MG, TID
     Route: 048
     Dates: start: 20111208, end: 20120216
  6. TIOTROPIUM BROMIDE [Concomitant]
     Dosage: 18 MUG, QD
     Route: 048
     Dates: start: 20111002, end: 20120216
  7. SALMETEROL [Concomitant]
     Dosage: UNK UNK, BID
     Route: 048
     Dates: start: 20111002, end: 20120216
  8. LEVOFLOXACIN [Concomitant]
     Dosage: 500 MG, QD
     Route: 048
     Dates: start: 20120112, end: 20120126
  9. AMPHO MORONAL [Concomitant]
     Dosage: UNK UNK, QID
     Route: 048
     Dates: start: 20120112, end: 20120126

REACTIONS (1)
  - Pelvic pain [Recovered/Resolved]
